FAERS Safety Report 7817807-0 (Version None)
Quarter: 2011Q4

REPORT INFORMATION
  Report Type: 
  Country: None (occurrence: None)
  Receive Date: 20111017
  Receipt Date: 20111004
  Transmission Date: 20120403
  Serious: No
  Sender: FDA-Public Use
  Company Number: US-JNJFOC-20111002624

PATIENT
  Sex: Male
  Weight: 106.14 kg

DRUGS (12)
  1. BENAZEPRIL HYDROCHLORIDE [Concomitant]
     Indication: BLOOD PRESSURE
     Route: 048
     Dates: start: 20060101
  2. FUROSEMIDE [Concomitant]
     Indication: FLUID RETENTION
     Route: 048
     Dates: start: 20060101
  3. VENLAFAXINE [Concomitant]
     Indication: NERVOUSNESS
     Route: 048
  4. DURAGESIC-100 [Suspect]
     Indication: PAIN
     Route: 062
     Dates: start: 20110701, end: 20110101
  5. DURAGESIC-100 [Suspect]
     Route: 062
     Dates: start: 20110101, end: 20110101
  6. DURAGESIC-100 [Suspect]
     Route: 062
     Dates: start: 20110101, end: 20110101
  7. NEXIUM [Concomitant]
     Indication: GASTROOESOPHAGEAL REFLUX DISEASE
     Route: 048
  8. DURAGESIC-100 [Suspect]
     Route: 062
     Dates: start: 20110901
  9. DURAGESIC-100 [Suspect]
     Route: 062
     Dates: start: 20110901
  10. DURAGESIC-100 [Suspect]
     Route: 062
     Dates: start: 20110101, end: 20110101
  11. PLAVIX [Concomitant]
     Indication: ANTICOAGULANT THERAPY
     Route: 048
     Dates: start: 20080101
  12. TOPIRAMATE [Concomitant]
     Indication: HEADACHE
     Route: 065
     Dates: start: 20080101

REACTIONS (6)
  - PAIN [None]
  - FEELING ABNORMAL [None]
  - WRONG TECHNIQUE IN DRUG USAGE PROCESS [None]
  - DRUG EFFECT DECREASED [None]
  - HANGOVER [None]
  - INCORRECT DRUG ADMINISTRATION DURATION [None]
